FAERS Safety Report 7610113-9 (Version None)
Quarter: 2011Q3

REPORT INFORMATION
  Report Type: 
  Country: None (occurrence: None)
  Receive Date: 20110715
  Receipt Date: 20110701
  Transmission Date: 20111222
  Serious: Yes (Hospitalization)
  Sender: FDA-Public Use
  Company Number: 2008BI007866

PATIENT
  Age: 34 Year
  Sex: Female

DRUGS (3)
  1. AVONEX [Suspect]
     Indication: MULTIPLE SCLEROSIS
     Route: 030
     Dates: start: 19980701, end: 20040101
  2. AVONEX [Suspect]
     Route: 030
     Dates: start: 20050601, end: 20070815
  3. AVONEX [Suspect]
     Route: 030
     Dates: start: 20080402

REACTIONS (4)
  - CAESAREAN SECTION [None]
  - AMNIOTIC FLUID VOLUME DECREASED [None]
  - MUSCULAR WEAKNESS [None]
  - PARAESTHESIA [None]
